FAERS Safety Report 4341561-0 (Version None)
Quarter: 2004Q2

REPORT INFORMATION
  Report Type: 
  Country: None (occurrence: None)
  Receive Date: 20040415
  Receipt Date: 20040406
  Transmission Date: 20050107
  Serious: Yes (Death)
  Sender: FDA-Public Use
  Company Number: 2004-04-0450

PATIENT
  Age: 47 Year
  Sex: Male

DRUGS (2)
  1. RIBAVIRIN [Suspect]
     Indication: ANTIVIRAL PROPHYLAXIS
     Dosage: 600 MG QD ORAL
     Route: 048
  2. INTERFERON ALFA-2B INJECTABLE [Suspect]
     Indication: ANTIVIRAL PROPHYLAXIS
     Dosage: 6 MU TIW

REACTIONS (5)
  - COMPLICATIONS OF TRANSPLANT SURGERY [None]
  - DISEASE RECURRENCE [None]
  - DRUG EFFECT DECREASED [None]
  - HEPATIC FAILURE [None]
  - HEPATITIS C VIRUS [None]
